FAERS Safety Report 13354952 (Version 2)
Quarter: 2019Q2

REPORT INFORMATION
  Report Type: Spontaneous
  Country: US (occurrence: US)
  Receive Date: 20170321
  Receipt Date: 20190628
  Transmission Date: 20190711
  Serious: Yes (Other)
  Sender: FDA-Public Use
  Company Number: US-PFIZER INC-2017118325

PATIENT
  Age: 38 Year
  Sex: Female
  Weight: 54.43 kg

DRUGS (1)
  1. VENLAFAXINE HCL [Suspect]
     Active Substance: VENLAFAXINE HYDROCHLORIDE
     Dosage: UNK

REACTIONS (6)
  - Feeling abnormal [Unknown]
  - Brain injury [Unknown]
  - Depressed mood [Unknown]
  - Drug ineffective [Unknown]
  - Malaise [Unknown]
  - Dizziness [Unknown]
